FAERS Safety Report 24034379 (Version 1)
Quarter: 2024Q2

REPORT INFORMATION
  Report Type: Spontaneous
  Country: US (occurrence: None)
  Receive Date: 20240628
  Receipt Date: 20240628
  Transmission Date: 20240716
  Serious: No
  Sender: FDA-Public Use
  Company Number: None

PATIENT
  Age: 14 Year
  Sex: Male

DRUGS (1)
  1. ADBRY [Suspect]
     Active Substance: TRALOKINUMAB-LDRM
     Indication: Dermatitis atopic
     Dosage: FREQUENCY : EVERY OTHER DAY;?
     Route: 058
     Dates: start: 20240524, end: 20240617

REACTIONS (2)
  - Skin exfoliation [None]
  - Therapy cessation [None]

NARRATIVE: CASE EVENT DATE: 20240526
